FAERS Safety Report 23897986 (Version 1)
Quarter: 2024Q2

REPORT INFORMATION
  Report Type: Spontaneous
  Country: US (occurrence: US)
  Receive Date: 20240524
  Receipt Date: 20240524
  Transmission Date: 20240716
  Serious: No
  Sender: FDA-Public Use
  Company Number: US-SA-SAC20240520000696

PATIENT
  Sex: Male
  Weight: 92.07 kg

DRUGS (2)
  1. DUPIXENT [Suspect]
     Active Substance: DUPILUMAB
     Indication: Eosinophilic oesophagitis
     Dosage: 300MG EVERY 7 DAYS
     Route: 058
     Dates: start: 202311
  2. PREDNISONE [Suspect]
     Active Substance: PREDNISONE

REACTIONS (4)
  - Diarrhoea [Unknown]
  - Insomnia [Unknown]
  - Mood swings [Unknown]
  - Drug ineffective [Unknown]
